FAERS Safety Report 16111845 (Version 1)
Quarter: 2019Q1

REPORT INFORMATION
  Report Type: Report from Study
  Country: PA (occurrence: PA)
  Receive Date: 20190325
  Receipt Date: 20190325
  Transmission Date: 20190418
  Serious: Yes (Other)
  Sender: FDA-Public Use
  Company Number: PA-SA-2019SA072146

PATIENT
  Age: 69 Year
  Sex: Female

DRUGS (1)
  1. IRBESARTAN. [Suspect]
     Active Substance: IRBESARTAN
     Indication: HYPERTENSION
     Dosage: 1 DF, QD,(24 HOURS)
     Route: 048
     Dates: start: 201703

REACTIONS (2)
  - Infarction [Not Recovered/Not Resolved]
  - Speech disorder [Not Recovered/Not Resolved]
